FAERS Safety Report 9718854 (Version 2)
Quarter: 2013Q4

REPORT INFORMATION
  Report Type: Report from Study
  Country: US (occurrence: US)
  Receive Date: 20131127
  Receipt Date: 20131204
  Transmission Date: 20140711
  Serious: Yes (Hospitalization)
  Sender: FDA-Public Use
  Company Number: US-MERCK-1311USA009990

PATIENT
  Age: 65 Year
  Sex: Female
  Weight: 63.49 kg

DRUGS (11)
  1. PLACEBO [Suspect]
     Indication: BIPOLAR I DISORDER
     Dosage: UNK
     Route: 048
     Dates: start: 20130521
  2. NORVASC [Suspect]
     Dosage: 5 MG, QD
     Route: 048
  3. LORAZEPAM [Concomitant]
     Dosage: 0.5 MG, PRN
     Route: 048
  4. VITAMINS (UNSPECIFIED) [Concomitant]
     Dosage: 1 DF, QD
     Route: 048
  5. METFORMIN [Concomitant]
     Dosage: 500 MG, BID
     Route: 048
  6. PRILOSEC [Concomitant]
     Dosage: 20 MG, QD
     Route: 048
  7. ELMIRON [Concomitant]
     Dosage: 100 MG, TID
     Route: 048
  8. XOPENEX HFA [Concomitant]
     Dosage: 2 PUFFS, PRN
     Route: 055
  9. VITAMIN D (UNSPECIFIED) [Concomitant]
     Dosage: 50,000 ONE TABLET, QW
     Route: 048
  10. SELENIUM (UNSPECIFIED) [Concomitant]
     Dosage: 200 MICROGRAM, QW
     Route: 048
  11. CYANOCOBALAMIN [Concomitant]
     Dosage: 1 CC, QM
     Route: 030

REACTIONS (1)
  - Hypotension [Not Recovered/Not Resolved]
